FAERS Safety Report 8806952 (Version 2)
Quarter: 2014Q3

REPORT INFORMATION
  Report Type: Report from Study
  Country: US (occurrence: US)
  Receive Date: 20120925
  Receipt Date: 20140730
  Transmission Date: 20150326
  Serious: Yes (Other)
  Sender: FDA-Public Use
  Company Number: US-ROCHE-1094903

PATIENT
  Sex: Female

DRUGS (4)
  1. AVASTIN [Suspect]
     Active Substance: BEVACIZUMAB
     Indication: BREAST CANCER FEMALE
     Route: 042
     Dates: start: 20050216
  2. AVASTIN [Suspect]
     Active Substance: BEVACIZUMAB
     Indication: BREAST CANCER METASTATIC
  3. TAXOL [Concomitant]
     Active Substance: PACLITAXEL
     Dosage: WITH BEVACIZUMAB
     Route: 065
     Dates: start: 20050216
  4. TAXOL [Concomitant]
     Active Substance: PACLITAXEL
     Route: 065

REACTIONS (3)
  - Bone lesion [Unknown]
  - Metastases to chest wall [Unknown]
  - Disease progression [Unknown]
